FAERS Safety Report 6293346-6 (Version None)
Quarter: 2009Q3

REPORT INFORMATION
  Report Type: 
  Country: None (occurrence: None)
  Receive Date: 20090731
  Receipt Date: 20090317
  Transmission Date: 20100115
  Serious: Yes (Death, Hospitalization)
  Sender: FDA-Public Use
  Company Number: PHHY2009DE21696

PATIENT
  Age: 36 Year
  Sex: Male

DRUGS (3)
  1. METOPIRONE [Suspect]
     Indication: HYPERCORTICOIDISM
     Dosage: 500 MG, UNK
  2. METOPIRONE [Suspect]
     Dosage: UPTO 500 MG THREE TIMES DAILY
  3. HYDROCORTISONE [Concomitant]
     Indication: GLUCOCORTICOIDS ABNORMAL
     Dosage: 100 MG /DAY

REACTIONS (4)
  - ACUTE RESPIRATORY DISTRESS SYNDROME [None]
  - MULTI-ORGAN FAILURE [None]
  - PNEUMOCYSTIS JIROVECI PNEUMONIA [None]
  - RESPIRATORY FAILURE [None]
